FAERS Safety Report 9592406 (Version 1)
Quarter: 2013Q4

REPORT INFORMATION
  Report Type: Spontaneous
  Country: US (occurrence: None)
  Receive Date: 20131003
  Receipt Date: 20131003
  Transmission Date: 20140711
  Serious: No
  Sender: FDA-Public Use
  Company Number: None

PATIENT
  Age: 46 Year
  Sex: Female

DRUGS (1)
  1. FENTANYL [Suspect]
     Dosage: 1 PATCH EVERY 48 HOURS
     Route: 062

REACTIONS (5)
  - Device leakage [None]
  - Somnolence [None]
  - Somnambulism [None]
  - Vomiting [None]
  - Overdose [None]
